FAERS Safety Report 7756886-6 (Version None)
Quarter: 2011Q3

REPORT INFORMATION
  Report Type: 
  Country: None (occurrence: None)
  Receive Date: 20110916
  Receipt Date: 20110913
  Transmission Date: 20111222
  Serious: Yes (Hospitalization)
  Sender: FDA-Public Use
  Company Number: US-GLAXOSMITHKLINE-A0867959A

PATIENT
  Age: 52 Year
  Sex: Female
  Weight: 65.9 kg

DRUGS (10)
  1. CYMBALTA [Concomitant]
  2. AVANDIA [Suspect]
     Indication: DIABETES MELLITUS
     Route: 048
  3. AVANDAMET [Suspect]
     Indication: DIABETES MELLITUS
     Dosage: 1TAB TWICE PER DAY
     Route: 048
     Dates: start: 20040101, end: 20060101
  4. SPIRIVA [Concomitant]
  5. INSULIN [Concomitant]
  6. GLUCOPHAGE [Concomitant]
  7. PROTONIX [Concomitant]
  8. LIPITOR [Concomitant]
  9. AMARYL [Concomitant]
  10. SYNTHROID [Concomitant]

REACTIONS (1)
  - MYOCARDIAL INFARCTION [None]
